FAERS Safety Report 20783190 (Version 1)
Quarter: 2022Q2

REPORT INFORMATION
  Report Type: Report from Study
  Country: US (occurrence: US)
  Receive Date: 20220504
  Receipt Date: 20220504
  Transmission Date: 20220721
  Serious: No
  Sender: FDA-Public Use
  Company Number: US-NOVARTISTESTPH-NVSC2022US101939

PATIENT
  Sex: Female

DRUGS (1)
  1. COSENTYX [Suspect]
     Active Substance: SECUKINUMAB
     Indication: Psoriasis
     Dosage: 300 MG, ONCE A WEEK FOR 5 WEEKS THEN ONCE EVERY 4 WEEKS
     Route: 058

REACTIONS (4)
  - Acne cystic [Unknown]
  - Pruritus [Unknown]
  - Dry skin [Unknown]
  - Stress [Unknown]
